FAERS Safety Report 8971370 (Version 1)
Quarter: 2012Q4

REPORT INFORMATION
  Report Type: 
  Country: US (occurrence: US)
  Receive Date: 20121218
  Receipt Date: 20121218
  Transmission Date: 20130627
  Serious: Yes (Other)
  Sender: FDA-Public Use
  Company Number: US-AMGEN-USASP2012078721

PATIENT
  Age: 58 Year
  Sex: Female

DRUGS (9)
  1. PROLIA [Suspect]
     Indication: OSTEOPOROSIS
  2. ARANESP [Concomitant]
  3. PAXIL [Concomitant]
  4. NIACIN [Concomitant]
  5. CALCIUM ACETATE [Concomitant]
  6. OMEPRAZOLE [Concomitant]
  7. SPIRONOLACTONE [Concomitant]
  8. HECTOROL [Concomitant]
  9. VITAMIN D                          /00318501/ [Concomitant]

REACTIONS (2)
  - Hungry bone syndrome [Unknown]
  - Blood calcium abnormal [Unknown]
